FAERS Safety Report 21424185 (Version 1)
Quarter: 2022Q4

REPORT INFORMATION
  Report Type: Spontaneous
  Country: US (occurrence: None)
  Receive Date: 20221007
  Receipt Date: 20221007
  Transmission Date: 20230112
  Serious: Yes (Life-Threatening, Hospitalization, Disabling, Other)
  Sender: FDA-Public Use
  Company Number: None

PATIENT
  Age: 25 Year
  Sex: Female
  Weight: 164 kg

DRUGS (33)
  1. LAMICTAL [Suspect]
     Active Substance: LAMOTRIGINE
     Indication: Bipolar disorder
     Dosage: FREQUENCY : AT BEDTIME;?
     Route: 048
     Dates: start: 20220707, end: 20220718
  2. LAMICTAL [Suspect]
     Active Substance: LAMOTRIGINE
     Indication: Anxiety
  3. ABILIFY [Concomitant]
     Active Substance: ARIPIPRAZOLE
  4. AJOVY [Concomitant]
     Active Substance: FREMANEZUMAB-VFRM
  5. ANAKINRA [Concomitant]
     Active Substance: ANAKINRA
  6. KINERET [Concomitant]
     Active Substance: ANAKINRA
  7. ATENOLOL [Concomitant]
     Active Substance: ATENOLOL
  8. BOTOX [Concomitant]
     Active Substance: ONABOTULINUMTOXINA
  9. DEXAMETHASONE [Concomitant]
     Active Substance: DEXAMETHASONE
  10. FAMOTIDINE [Concomitant]
     Active Substance: FAMOTIDINE
  11. FLUCONAZOLE [Concomitant]
     Active Substance: FLUCONAZOLE
  12. GABAPENTIN [Concomitant]
     Active Substance: GABAPENTIN
  13. IPRATROPIUM [Concomitant]
     Active Substance: IPRATROPIUM
  14. bromide [Concomitant]
  15. UNSPECIFIED INGREDIENT [Concomitant]
     Active Substance: UNSPECIFIED INGREDIENT
  16. KEPPRA [Concomitant]
     Active Substance: LEVETIRACETAM
  17. MAGNESIUM [Concomitant]
     Active Substance: MAGNESIUM
  18. oxide [Concomitant]
  19. MIRALAX [Concomitant]
     Active Substance: POLYETHYLENE GLYCOL 3350
  20. NYSTATIN [Concomitant]
     Active Substance: NYSTATIN
  21. swish [Concomitant]
  22. PLAQUENIL [Concomitant]
     Active Substance: HYDROXYCHLOROQUINE SULFATE
  23. PREVIDENT [Concomitant]
     Active Substance: SODIUM FLUORIDE
  24. UNSPECIFIED INGREDIENT [Concomitant]
     Active Substance: UNSPECIFIED INGREDIENT
  25. RIBOFLAVIN [Concomitant]
     Active Substance: RIBOFLAVIN
  26. TRAZODONE [Concomitant]
     Active Substance: TRAZODONE HYDROCHLORIDE
  27. ZYRTEC [Concomitant]
     Active Substance: CETIRIZINE HYDROCHLORIDE
  28. ATIVAN [Concomitant]
     Active Substance: LORAZEPAM
  29. MELATONIN [Concomitant]
     Active Substance: MELATONIN
  30. NAPROXEN [Concomitant]
     Active Substance: NAPROXEN
  31. PERCOCET [Concomitant]
     Active Substance: ACETAMINOPHEN\OXYCODONE HYDROCHLORIDE
  32. UBRELVY [Concomitant]
     Active Substance: UBROGEPANT
  33. VISTARIL [Concomitant]
     Active Substance: HYDROXYZINE PAMOATE

REACTIONS (24)
  - Panic attack [None]
  - Migraine [None]
  - Myalgia [None]
  - Myalgia [None]
  - Electric shock sensation [None]
  - Dizziness [None]
  - Haemophagocytic lymphohistiocytosis [None]
  - Haemoglobin abnormal [None]
  - Haematocrit abnormal [None]
  - Electrolyte imbalance [None]
  - Cerebrovascular accident [None]
  - Electroencephalogram abnormal [None]
  - Oxygen saturation decreased [None]
  - Hypervolaemia [None]
  - Therapy interrupted [None]
  - Bedridden [None]
  - Gait inability [None]
  - Walking aid user [None]
  - Infusion site discolouration [None]
  - Infusion site extravasation [None]
  - Loss of employment [None]
  - Impaired work ability [None]
  - Economic problem [None]
  - Seizure [None]

NARRATIVE: CASE EVENT DATE: 20220719
